FAERS Safety Report 6344730-3 (Version None)
Quarter: 2009Q3

REPORT INFORMATION
  Report Type: 
  Country: None (occurrence: None)
  Receive Date: 20090821
  Receipt Date: 20090710
  Transmission Date: 20100115
  Serious: Yes (Hospitalization)
  Sender: FDA-Public Use
  Company Number: 8046829

PATIENT
  Age: 42 Year
  Sex: Female

DRUGS (6)
  1. CIMZIA [Suspect]
     Indication: CROHN'S DISEASE
     Dosage: 400 MG 1/2W SC
     Route: 058
     Dates: start: 20081119, end: 20090507
  2. CIMZIA [Suspect]
     Indication: CROHN'S DISEASE
     Dosage: 400 MG 1/2W SC
     Route: 058
     Dates: start: 20090513
  3. LOMOTIL [Concomitant]
  4. PERCOCET [Concomitant]
  5. FENTANYL TRANSDERMAL SYSTEM [Concomitant]
  6. PEPCID [Concomitant]

REACTIONS (2)
  - ANAL FISSURE [None]
  - ILEOSTOMY [None]
